FAERS Safety Report 23466394 (Version 1)
Quarter: 2024Q1

REPORT INFORMATION
  Report Type: Other
  Country: US (occurrence: None)
  Receive Date: 20240201
  Receipt Date: 20240201
  Transmission Date: 20240409
  Serious: Yes (Other)
  Sender: FDA-Public Use
  Company Number: US-ROCHE-3499596

PATIENT
  Age: 54 Year
  Sex: Female
  Weight: 136.2 kg

DRUGS (9)
  1. OCREVUS [Suspect]
     Active Substance: OCRELIZUMAB
     Indication: Relapsing-remitting multiple sclerosis
     Route: 042
     Dates: start: 2018, end: 202306
  2. RITUXAN [Suspect]
     Active Substance: RITUXIMAB
     Indication: Relapsing-remitting multiple sclerosis
     Route: 041
     Dates: start: 2016, end: 2017
  3. BACLOFEN [Concomitant]
     Active Substance: BACLOFEN
  4. REQUIP [Concomitant]
     Active Substance: ROPINIROLE HYDROCHLORIDE
  5. LYRICA [Concomitant]
     Active Substance: PREGABALIN
  6. METOPROLOL [Concomitant]
     Active Substance: METOPROLOL
  7. SYNTHROID [Concomitant]
     Active Substance: LEVOTHYROXINE SODIUM
  8. DULOXETINE [Concomitant]
     Active Substance: DULOXETINE
  9. VITAMIN D3 [Concomitant]
     Active Substance: CHOLECALCIFEROL

REACTIONS (9)
  - Lung adenocarcinoma [Not Recovered/Not Resolved]
  - Urinary tract infection [Not Recovered/Not Resolved]
  - Clostridium difficile infection [Unknown]
  - Nodule [Not Recovered/Not Resolved]
  - Multiple sclerosis pseudo relapse [Unknown]
  - COVID-19 [Unknown]
  - Occipital neuralgia [Not Recovered/Not Resolved]
  - Off label use [Unknown]
  - Drug resistance [Unknown]

NARRATIVE: CASE EVENT DATE: 20160101
